FAERS Safety Report 5161975-9 (Version None)
Quarter: 2006Q4

REPORT INFORMATION
  Report Type: 
  Country: None (occurrence: None)
  Receive Date: 20061130
  Receipt Date: 20041228
  Transmission Date: 20070319
  Serious: Yes (Death, Hospitalization, Disabling)
  Sender: FDA-Public Use
  Company Number: JP-BRISTOL-MYERS SQUIBB COMPANY-12807392

PATIENT
  Age: 44 Year
  Sex: Male

DRUGS (21)
  1. PARAPLATIN [Suspect]
     Indication: LYMPHOMA
     Route: 041
     Dates: start: 20041209, end: 20041212
  2. PARAPLATIN [Suspect]
     Indication: STEM CELL TRANSPLANT
     Route: 041
     Dates: start: 20041209, end: 20041212
  3. VEPESID [Suspect]
     Indication: LYMPHOMA
     Route: 041
     Dates: start: 20041210, end: 20041212
  4. VEPESID [Suspect]
     Indication: STEM CELL TRANSPLANT
     Route: 041
     Dates: start: 20041210, end: 20041212
  5. ENDOXAN [Suspect]
     Indication: LYMPHOMA
     Route: 041
     Dates: start: 20041213, end: 20041214
  6. ENDOXAN [Suspect]
     Indication: STEM CELL TRANSPLANT
     Route: 041
     Dates: start: 20041213, end: 20041214
  7. CYMERIN [Suspect]
     Indication: LYMPHOMA
     Dosage: 1ST DOSE - 08DEC04
     Route: 041
     Dates: start: 20041208, end: 20041213
  8. CYMERIN [Suspect]
     Indication: STEM CELL TRANSPLANT
     Dosage: 1ST DOSE - 08DEC04
     Route: 041
     Dates: start: 20041208, end: 20041213
  9. MAXIPIME [Concomitant]
     Route: 041
     Dates: start: 20041210, end: 20041216
  10. RITUXAN [Concomitant]
     Route: 041
     Dates: start: 20041207, end: 20041217
  11. PRODIF [Concomitant]
     Route: 041
     Dates: start: 20041213, end: 20041214
  12. HEMATOPOETIC PROGENITOR CELLS HUMAN [Concomitant]
  13. KYTRIL [Concomitant]
     Dates: start: 20041208, end: 20041214
  14. FUROSEMIDE [Concomitant]
     Route: 042
     Dates: start: 20041209, end: 20041215
  15. RADIOTHERAPY [Concomitant]
     Dates: start: 20041109, end: 20041207
  16. PLATELETS [Concomitant]
     Dates: start: 20040926, end: 20050122
  17. PRBC TRANSFUSION [Concomitant]
     Dates: start: 20040926, end: 20050122
  18. FLUCONAZOLE [Concomitant]
     Dates: start: 20041213, end: 20041214
  19. UROMITEXAN [Concomitant]
     Dates: start: 20041213, end: 20041214
  20. DOXORUBICIN HCL [Concomitant]
     Dates: start: 20040401
  21. VINCRISTINE SULFATE [Concomitant]
     Dates: start: 20040401

REACTIONS (32)
  - ANURIA [None]
  - ANXIETY [None]
  - ARTERIOSCLEROSIS [None]
  - BLOOD BILIRUBIN INCREASED [None]
  - BLOOD LACTATE DEHYDROGENASE INCREASED [None]
  - CARDIAC FAILURE [None]
  - CARDIAC TAMPONADE [None]
  - DELIRIUM [None]
  - DELUSION [None]
  - DIARRHOEA [None]
  - DISORIENTATION [None]
  - GASTROINTESTINAL HAEMORRHAGE [None]
  - HAEMODIALYSIS [None]
  - HALLUCINATION, AUDITORY [None]
  - HALLUCINATION, VISUAL [None]
  - MALIGNANT NEOPLASM PROGRESSION [None]
  - MENTAL DISORDER [None]
  - NAUSEA [None]
  - ORAL INTAKE REDUCED [None]
  - PALPITATIONS [None]
  - PERICARDIAL HAEMORRHAGE [None]
  - POST PROCEDURAL COMPLICATION [None]
  - PYREXIA [None]
  - RENAL FAILURE [None]
  - RENAL FAILURE ACUTE [None]
  - SHOCK [None]
  - SPLEEN DISORDER [None]
  - TACHYCARDIA [None]
  - TREMOR [None]
  - VOMITING [None]
  - WEIGHT INCREASED [None]
  - WHITE BLOOD CELL COUNT DECREASED [None]
